FAERS Safety Report 8445434-3 (Version None)
Quarter: 2012Q2

REPORT INFORMATION
  Report Type: 
  Country: None (occurrence: None)
  Receive Date: 20120618
  Receipt Date: 20120403
  Transmission Date: 20120825
  Serious: No
  Sender: FDA-Public Use
  Company Number: US-TEVA-332559USA

PATIENT
  Sex: Female
  Weight: 99.88 kg

DRUGS (18)
  1. BUPROPION HCL [Concomitant]
     Indication: DEPRESSION
     Dosage: 100 MILLIGRAM;
     Route: 048
  2. METOPROLOL SUCCINATE [Concomitant]
     Indication: HYPERTENSION
     Route: 048
     Dates: start: 20120402
  3. CLONIDINE [Concomitant]
     Indication: BLOOD PRESSURE
  4. FLUTICASONE PROPIONATE/SALMETEROL [Concomitant]
     Indication: ASTHMA
  5. ERGOCALCIFEROL [Concomitant]
     Route: 048
  6. ONDANSETRON [Concomitant]
     Indication: NAUSEA
     Route: 048
  7. HYDROMORPHONE HYDROCHLORIDE [Concomitant]
  8. FENTANYL [Concomitant]
     Indication: CANCER PAIN
     Route: 061
     Dates: start: 20051001, end: 20120101
  9. BENAZEPRIL HYDROCHLORIDE [Concomitant]
     Indication: HYPERTENSION
  10. METHADONE HCL [Concomitant]
     Indication: CANCER PAIN
     Dosage: 10 MILLIGRAM;
     Route: 048
     Dates: start: 20120101
  11. OCTREOTIDE ACETATE [Concomitant]
     Indication: NEOPLASM MALIGNANT
  12. PREGABALIN [Concomitant]
     Indication: FIBROMYALGIA
     Route: 048
  13. MONTELUKAST [Concomitant]
     Indication: HYPERSENSITIVITY
     Route: 048
  14. PANCREATIN TRIPLE STRENGTH CAP [Concomitant]
     Indication: PANCREATIC ENZYMES
     Route: 048
  15. FENTORA [Suspect]
     Indication: CANCER PAIN
     Route: 002
     Dates: start: 20110307
  16. ACETAMINOPHEN [Concomitant]
     Indication: PAIN
  17. ZOLPIDEM TARTRATE [Concomitant]
     Indication: INSOMNIA
     Route: 048
  18. OXYCODONE HCL [Concomitant]
     Indication: CANCER PAIN
     Route: 048
     Dates: start: 20120301, end: 20120301

REACTIONS (3)
  - PAIN [None]
  - HYPOAESTHESIA [None]
  - HERPES ZOSTER [None]
